FAERS Safety Report 4963386-5 (Version None)
Quarter: 2006Q2

REPORT INFORMATION
  Report Type: 
  Country: None (occurrence: None)
  Receive Date: 20060404
  Receipt Date: 20060404
  Transmission Date: 20061013
  Serious: Yes (Hospitalization)
  Sender: FDA-Public Use
  Company Number: None

PATIENT
  Age: 57 Year
  Sex: Male
  Weight: 107.9561 kg

DRUGS (2)
  1. QUETIAPINE FUMARATE [Suspect]
     Dosage: 200 MG PO QHS
     Route: 048
  2. TRAZODONE HCL [Suspect]
     Dosage: 100 MG PO QHS
     Route: 048

REACTIONS (3)
  - FALL [None]
  - HYPERTENSION [None]
  - ORTHOSTATIC HYPOTENSION [None]
